FAERS Safety Report 12099510 (Version 1)
Quarter: 2016Q1

REPORT INFORMATION
  Report Type: Spontaneous
  Country: US (occurrence: None)
  Receive Date: 20160219
  Receipt Date: 20160219
  Transmission Date: 20160526
  Serious: No
  Sender: FDA-Public Use
  Company Number: None

PATIENT

DRUGS (1)
  1. TEMAZEPAM (TEMAZEPAM) [Suspect]
     Active Substance: TEMAZEPAM

REACTIONS (3)
  - Intercepted medication error [None]
  - Transcription medication error [None]
  - Drug dispensed to wrong patient [None]
